FAERS Safety Report 8189692-1 (Version None)
Quarter: 2012Q1

REPORT INFORMATION
  Report Type: 
  Country: None (occurrence: None)
  Receive Date: 20120307
  Receipt Date: 20120228
  Transmission Date: 20120608
  Serious: Yes (Hospitalization)
  Sender: FDA-Public Use
  Company Number: US-US-EMD SERONO, INC.-7116016

PATIENT
  Sex: Male

DRUGS (18)
  1. VFEND [Concomitant]
  2. CYTARABINE [Suspect]
     Indication: ACUTE MYELOID LEUKAEMIA
     Dates: start: 20111114
  3. MIRALAX [Concomitant]
  4. PROGRAF [Concomitant]
  5. MAGNESIUM [Concomitant]
  6. MEGACE [Concomitant]
  7. NICOTINE [Concomitant]
  8. TRAZODONE HCL [Concomitant]
  9. NOVANTRONE [Suspect]
     Indication: ACUTE MYELOID LEUKAEMIA
     Dates: start: 20111114
  10. ETOPOSIDE [Suspect]
     Indication: ACUTE MYELOID LEUKAEMIA
     Dates: start: 20111114
  11. MDX-1338/BMS 936564 [Suspect]
     Indication: ACUTE MYELOID LEUKAEMIA
     Dates: start: 20111107
  12. REMERON [Concomitant]
  13. VALTREX [Concomitant]
  14. VANTIN [Concomitant]
  15. ZOFRAN [Concomitant]
  16. CALCIUM CARBONATE [Concomitant]
  17. HEPARIN [Concomitant]
  18. PRED FORTE [Concomitant]

REACTIONS (3)
  - HYPOTENSION [None]
  - LUNG INFECTION [None]
  - SEPSIS [None]
